FAERS Safety Report 4764279-9 (Version None)
Quarter: 2005Q3

REPORT INFORMATION
  Report Type: 
  Country: None (occurrence: None)
  Receive Date: 20050909
  Receipt Date: 20050825
  Transmission Date: 20060218
  Serious: Yes (Hospitalization)
  Sender: FDA-Public Use
  Company Number: FR-BOEHRINGER INGELHEIM PHARMACEUTICALS, INC.-2005-FF-00594FF

PATIENT
  Age: 81 Year
  Sex: Female

DRUGS (10)
  1. CATAPRES [Suspect]
     Route: 048
     Dates: end: 20050802
  2. HYPERIUM [Concomitant]
     Route: 048
  3. TAHOR [Concomitant]
     Route: 048
  4. COTAREG [Concomitant]
     Route: 048
  5. LOXEN LP [Concomitant]
     Route: 048
  6. TEGRETOL [Concomitant]
     Route: 048
  7. NITRODERM [Concomitant]
  8. PLAVIX [Concomitant]
  9. IMOVANE [Concomitant]
  10. HUMALOG [Concomitant]
     Indication: DIABETES MELLITUS

REACTIONS (1)
  - TOXIC SKIN ERUPTION [None]
